FAERS Safety Report 6407719-1 (Version None)
Quarter: 2009Q4

REPORT INFORMATION
  Report Type: 
  Country: None (occurrence: None)
  Receive Date: 20091020
  Receipt Date: 20091015
  Transmission Date: 20100525
  Serious: Yes (Death)
  Sender: FDA-Public Use
  Company Number: IL-CELGENEUS-082-50794-09101277

PATIENT
  Age: 86 Year
  Sex: Male

DRUGS (1)
  1. VIDAZA [Suspect]
     Route: 048

REACTIONS (1)
  - SEPSIS [None]
